FAERS Safety Report 10160880 (Version 2)
Quarter: 2014Q2

REPORT INFORMATION
  Report Type: Spontaneous
  Country: US (occurrence: US)
  Receive Date: 20140508
  Receipt Date: 20140625
  Transmission Date: 20141212
  Serious: Yes (Hospitalization)
  Sender: FDA-Public Use
  Company Number: US-PFIZER INC-2014124752

PATIENT
  Sex: Female

DRUGS (1)
  1. LYRICA [Suspect]
     Indication: FIBROMYALGIA
     Dosage: 100 MG, 2X/DAY

REACTIONS (6)
  - Limb deformity [Unknown]
  - Hypersensitivity [Unknown]
  - Pruritus [Unknown]
  - Rash generalised [Unknown]
  - Swollen tongue [Unknown]
  - Discomfort [Unknown]
